FAERS Safety Report 22391553 (Version 1)
Quarter: 2023Q2

REPORT INFORMATION
  Report Type: Spontaneous
  Country: US (occurrence: US)
  Receive Date: 20230601
  Receipt Date: 20230601
  Transmission Date: 20230721
  Serious: Yes (Hospitalization, Other)
  Sender: FDA-Public Use
  Company Number: US-BRISTOL-MYERS SQUIBB COMPANY-2023-073871

PATIENT
  Age: 40 Year
  Sex: Female
  Weight: 60.78 kg

DRUGS (2)
  1. KENALOG [Suspect]
     Active Substance: TRIAMCINOLONE ACETONIDE
     Indication: Back disorder
     Dosage: FREQUENCY : ONE SINGLE 40 MG DOSE INJECTED INTO 4 AREAS OF HER BACK
     Route: 030
     Dates: start: 20221018
  2. ATIVAN [Concomitant]
     Active Substance: LORAZEPAM
     Indication: Product used for unknown indication

REACTIONS (13)
  - Psychotic disorder [Unknown]
  - Anxiety [Unknown]
  - Weight decreased [Unknown]
  - Alopecia [Unknown]
  - Vaginal haemorrhage [Unknown]
  - Depression [Unknown]
  - Muscle twitching [Unknown]
  - Ovarian cyst [Unknown]
  - Skin burning sensation [Unknown]
  - Palpitations [Unknown]
  - Panic attack [Unknown]
  - Insomnia [Unknown]
  - Suicidal ideation [Unknown]

NARRATIVE: CASE EVENT DATE: 20221019
